FAERS Safety Report 7371782-4 (Version None)
Quarter: 2011Q1

REPORT INFORMATION
  Report Type: 
  Country: None (occurrence: None)
  Receive Date: 20110316
  Receipt Date: 20110301
  Transmission Date: 20110831
  Serious: Yes (Hospitalization)
  Sender: FDA-Public Use
  Company Number: 2011-0591

PATIENT
  Age: 55 Year
  Sex: Female

DRUGS (1)
  1. IPSTYL 120MG (LANREOTIDE  AUTOGEL) (LANREOTIDE) (LANREOTIDE ACETATE) [Suspect]
     Indication: ACROMEGALY
     Dosage: 120 MG(120 MG, ONCE)
     Dates: start: 20110211, end: 20110211

REACTIONS (1)
  - ILEUS PARALYTIC [None]
